FAERS Safety Report 24697640 (Version 1)
Quarter: 2024Q4

REPORT INFORMATION
  Report Type: Spontaneous
  Country: US (occurrence: US)
  Receive Date: 20241204
  Receipt Date: 20241204
  Transmission Date: 20250115
  Serious: No
  Sender: MERCK
  Company Number: US-009507513-2412USA000819

PATIENT
  Sex: Female
  Weight: 165 kg

DRUGS (10)
  1. WINREVAIR [Suspect]
     Active Substance: SOTATERCEPT-CSRK
     Indication: Product used for unknown indication
     Dosage: 0.3 MILLIGRAM/KILOGRAM, MAINTENANCE DOSE
     Route: 065
  2. REMODULIN [Suspect]
     Active Substance: TREPROSTINIL
     Indication: Pulmonary arterial hypertension
     Dosage: 0.05 MICROGRAM PER KILOGRAM, CONTINUING
     Route: 041
     Dates: start: 20230922
  3. ADEMPAS [Suspect]
     Active Substance: RIOCIGUAT
     Indication: Product used for unknown indication
  4. TYLENOL [Concomitant]
     Active Substance: ACETAMINOPHEN
  5. TADALAFIL [Concomitant]
     Active Substance: TADALAFIL
  6. LASIX [Concomitant]
     Active Substance: FUROSEMIDE
  7. OPSUMIT [Concomitant]
     Active Substance: MACITENTAN
  8. TRAMADOL HCL [Concomitant]
     Active Substance: TRAMADOL HYDROCHLORIDE
  9. SPIRONOLACTONE [Concomitant]
     Active Substance: SPIRONOLACTONE
  10. ONDANSETRON HYDROCHLORIDE [Concomitant]
     Active Substance: ONDANSETRON HYDROCHLORIDE

REACTIONS (3)
  - Haemoglobin increased [Unknown]
  - Laboratory test abnormal [Unknown]
  - Vomiting [Recovered/Resolved]

NARRATIVE: CASE EVENT DATE: 20240101
